FAERS Safety Report 5298323-X (Version None)
Quarter: 2007Q2

REPORT INFORMATION
  Report Type: 
  Country: None (occurrence: None)
  Receive Date: 20070416
  Receipt Date: 20070405
  Transmission Date: 20071010
  Serious: Yes (Hospitalization, Other)
  Sender: FDA-Public Use
  Company Number: US-PFIZER INC-2006144494

PATIENT
  Sex: Female

DRUGS (1)
  1. BEXTRA [Suspect]
     Indication: ARTHRITIS
     Route: 048
     Dates: start: 20020601, end: 20040401

REACTIONS (1)
  - CEREBROVASCULAR ACCIDENT [None]
